FAERS Safety Report 8559231-1 (Version None)
Quarter: 2012Q3

REPORT INFORMATION
  Report Type: 
  Country: None (occurrence: None)
  Receive Date: 20120720
  Receipt Date: 20120704
  Transmission Date: 20120928
  Serious: Yes (Hospitalization, Other)
  Sender: FDA-Public Use
  Company Number: AUR-APL-2012-02488

PATIENT
  Age: 63 Year
  Sex: Male

DRUGS (10)
  1. CISATRACURIUM (CISATRACURIUM) [Concomitant]
  2. METFFORMIN HYDROCHLORIDE [Suspect]
     Indication: TYPE 2 DIABETES MELLITUS
     Dosage: 1000 MG (500 MG, 2, 1 D)
  3. NICARDIPINE HCL [Concomitant]
  4. SIMVASTATIN [Concomitant]
  5. BENDROFLUAZIDE (BENDROFLUMETHIAZIDE) [Concomitant]
  6. DOXAZOCIN (DOXAZOSIN MESILATE) [Concomitant]
  7. REMIFENTANIL (REMIFENTANIL) [Concomitant]
  8. ALFENTANIL [Concomitant]
  9. PROPOFOL [Concomitant]
  10. ISOFLURANE [Concomitant]

REACTIONS (5)
  - BLOOD GLUCOSE INCREASED [None]
  - LACTIC ACIDOSIS [None]
  - PROCEDURAL HAEMORRHAGE [None]
  - MULTI-ORGAN FAILURE [None]
  - DIALYSIS [None]
